FAERS Safety Report 8450755-4 (Version None)
Quarter: 2012Q2

REPORT INFORMATION
  Report Type: 
  Country: None (occurrence: None)
  Receive Date: 20120620
  Receipt Date: 20120618
  Transmission Date: 20120825
  Serious: Yes (Other)
  Sender: FDA-Public Use
  Company Number: US-PFIZER INC-2012134251

PATIENT
  Sex: Female
  Weight: 81.6 kg

DRUGS (4)
  1. ATENOLOL [Concomitant]
     Indication: HYPERTENSION
     Dosage: 50 MG, 1X/DAY
  2. BENADRYL [Concomitant]
     Indication: SLEEP DISORDER
     Dosage: 20 MG, 1X/DAY
  3. LYRICA [Suspect]
     Dosage: 150 MG, 3X/DAY
  4. LYRICA [Suspect]
     Indication: DIABETIC NEUROPATHY
     Dosage: UNK, 3X/DAY
     Route: 048

REACTIONS (7)
  - WEIGHT INCREASED [None]
  - OEDEMA PERIPHERAL [None]
  - HYPOAESTHESIA [None]
  - ARTHRALGIA [None]
  - DRY MOUTH [None]
  - JOINT SWELLING [None]
  - PAIN IN EXTREMITY [None]
